FAERS Safety Report 4410909-0 (Version None)
Quarter: 2004Q3

REPORT INFORMATION
  Report Type: 
  Country: None (occurrence: None)
  Receive Date: 20040726
  Receipt Date: 20040701
  Transmission Date: 20050211
  Serious: No
  Sender: FDA-Public Use
  Company Number: 04H-163-0265992-00

PATIENT
  Sex: Male

DRUGS (2)
  1. FENTANYL CITRATE [Suspect]
     Dates: start: 20040101, end: 20040101
  2. SODIUM CHLORIDE [Suspect]
     Dates: start: 20040101, end: 20040101

REACTIONS (1)
  - MENINGITIS [None]
